FAERS Safety Report 25735363 (Version 1)
Quarter: 2025Q3

REPORT INFORMATION
  Report Type: Spontaneous
  Country: EU (occurrence: EU)
  Receive Date: 20250828
  Receipt Date: 20250828
  Transmission Date: 20251020
  Serious: Yes (Hospitalization)
  Sender: MYLAN
  Company Number: None

PATIENT
  Age: 41 Year
  Sex: Male
  Weight: 78 kg

DRUGS (20)
  1. PAROXETINE [Suspect]
     Active Substance: PAROXETINE
     Indication: Behaviour disorder
     Dosage: 60 MILLIGRAM, QD
     Dates: start: 20241217
  2. CYAMEMAZINE [Suspect]
     Active Substance: CYAMEMAZINE
     Indication: Behaviour disorder
     Dosage: 90 MILLIGRAM, QD
     Dates: start: 20241125, end: 20250316
  3. CYAMEMAZINE [Suspect]
     Active Substance: CYAMEMAZINE
     Dosage: 140 MILLIGRAM, QD
     Dates: start: 20250317, end: 20250323
  4. CYAMEMAZINE [Suspect]
     Active Substance: CYAMEMAZINE
     Dosage: 90 MILLIGRAM, QD
     Dates: start: 20250323, end: 20250731
  5. CYAMEMAZINE [Suspect]
     Active Substance: CYAMEMAZINE
     Dosage: 150 MILLIGRAM, QD
     Dates: start: 20250731, end: 20250801
  6. CYAMEMAZINE [Suspect]
     Active Substance: CYAMEMAZINE
     Dosage: 50 MILLIGRAM, QD
     Dates: start: 20250802, end: 20250803
  7. TIAPRIDE [Suspect]
     Active Substance: TIAPRIDE
     Indication: Behaviour disorder
     Dosage: 800 MILLIGRAM, QD
     Dates: start: 20240917, end: 20250731
  8. TIAPRIDE [Suspect]
     Active Substance: TIAPRIDE
     Dosage: 600 MILLIGRAM, QD
     Dates: start: 20250801, end: 20250801
  9. TIAPRIDE [Suspect]
     Active Substance: TIAPRIDE
     Dosage: 300 MILLIGRAM, QD
     Dates: start: 20250802, end: 20250802
  10. TIAPRIDE [Suspect]
     Active Substance: TIAPRIDE
     Dosage: 350 MILLIGRAM, QD
     Dates: start: 20250803, end: 20250803
  11. PREGABALIN [Concomitant]
     Active Substance: PREGABALIN
     Indication: Behaviour disorder
     Dosage: 25 MILLIGRAM, QD
     Dates: start: 20250730, end: 20250730
  12. PREGABALIN [Concomitant]
     Active Substance: PREGABALIN
     Dosage: 50 MILLIGRAM, QD
     Dates: start: 20250731, end: 20250801
  13. PREGABALIN [Concomitant]
     Active Substance: PREGABALIN
     Dosage: 75 MILLIGRAM, QD
     Dates: start: 20250802, end: 20250804
  14. PREGABALIN [Concomitant]
     Active Substance: PREGABALIN
     Dosage: 100 MILLIGRAM, QD
     Dates: start: 20250805
  15. DIAZEPAM [Concomitant]
     Active Substance: DIAZEPAM
     Indication: Behaviour disorder
     Dosage: 30 MILLIGRAM, QD
     Dates: start: 20241123, end: 20250731
  16. DIAZEPAM [Concomitant]
     Active Substance: DIAZEPAM
     Dosage: 10 MILLIGRAM, QD (10 TO 30MG/DAY, ON AVERAGE 10MG/DAY)
     Dates: start: 20250801, end: 20250805
  17. FONDAPARINUX SODIUM [Concomitant]
     Active Substance: FONDAPARINUX SODIUM
     Indication: Cardiovascular event prophylaxis
     Dates: start: 20250607, end: 20250805
  18. VALPROMIDE [Concomitant]
     Active Substance: VALPROMIDE
     Indication: Behaviour disorder
     Dosage: 1800 MILLIGRAM, QD
     Dates: start: 20231217, end: 20250731
  19. VALPROMIDE [Concomitant]
     Active Substance: VALPROMIDE
     Dosage: 1200 MILLIGRAM, QD
     Dates: start: 20250801
  20. MIANSERIN HYDROCHLORIDE [Concomitant]
     Active Substance: MIANSERIN HYDROCHLORIDE
     Indication: Behaviour disorder
     Dosage: 30 MILLIGRAM, QD
     Dates: start: 20250730

REACTIONS (3)
  - Hyperthermia [Recovered/Resolved]
  - Dysphagia [Recovering/Resolving]
  - Urinary retention [Recovered/Resolved]

NARRATIVE: CASE EVENT DATE: 20250803
